FAERS Safety Report 4264592-8 (Version None)
Quarter: 2004Q1

REPORT INFORMATION
  Report Type: 
  Country: None (occurrence: None)
  Receive Date: 20040105
  Receipt Date: 20031223
  Transmission Date: 20041129
  Serious: Yes (Other)
  Sender: FDA-Public Use
  Company Number: 200314101BCC

PATIENT
  Age: 54 Year
  Sex: Female
  Weight: 52.1637 kg

DRUGS (7)
  1. ASPIRIN [Suspect]
     Indication: MYOCARDIAL INFARCTION
     Dosage: QOD,ORAL
     Route: 048
     Dates: start: 20031105
  2. ASPIRIN [Suspect]
     Indication: PROPHYLAXIS
     Dosage: QOD,ORAL
     Route: 048
     Dates: start: 20031105
  3. MULTIVITAMIN [Suspect]
  4. SYNTHROID [Concomitant]
  5. VERAPAMIL [Concomitant]
  6. LIPITOR [Concomitant]
  7. VITAMIN E [Concomitant]

REACTIONS (2)
  - HEART RATE INCREASED [None]
  - PARAESTHESIA [None]
